FAERS Safety Report 9227121 (Version 1)
Quarter: 2013Q2

REPORT INFORMATION
  Report Type: Spontaneous
  Country: BR (occurrence: BR)
  Receive Date: 20130412
  Receipt Date: 20130412
  Transmission Date: 20140414
  Serious: Yes (Other)
  Sender: FDA-Public Use
  Company Number: BR-ACCORD-017144

PATIENT
  Age: 59 Year
  Sex: Male
  Weight: 60 kg

DRUGS (5)
  1. IRINOTECAN HYDROCHLORIDE [Suspect]
     Indication: GASTRIC CANCER
     Route: 042
     Dates: start: 20130305, end: 20130305
  2. ONDANSETRON [Concomitant]
     Route: 042
     Dates: start: 20130305, end: 20130305
  3. DEXAMETHASONE [Concomitant]
     Route: 042
     Dates: start: 20130305, end: 20130305
  4. ATROPINE [Concomitant]
     Route: 042
     Dates: start: 20130305, end: 20130305
  5. CISPLATIN [Concomitant]
     Route: 042
     Dates: start: 20130305, end: 20130305

REACTIONS (3)
  - Dyspnoea [Recovered/Resolved]
  - Oxygen saturation decreased [Recovered/Resolved]
  - Off label use [Unknown]
